FAERS Safety Report 25257571 (Version 2)
Quarter: 2025Q2

REPORT INFORMATION
  Report Type: Report from Study
  Country: CA (occurrence: CA)
  Receive Date: 20250430
  Receipt Date: 20250528
  Transmission Date: 20250717
  Serious: No
  Sender: LUNDBECK
  Company Number: CA-LUNDBECK-DKLU4013922

PATIENT
  Age: 57 Year
  Sex: Female

DRUGS (2)
  1. VYEPTI [Suspect]
     Active Substance: EPTINEZUMAB-JJMR
     Indication: Migraine
     Dosage: 100 MILLIGRAM
     Route: 041
     Dates: start: 20230130
  2. KETAMINE [Concomitant]
     Active Substance: KETAMINE
     Indication: Product used for unknown indication

REACTIONS (1)
  - Dyspepsia [Unknown]
